FAERS Safety Report 7904192 (Version 2)
Quarter: 2012Q4

REPORT INFORMATION
  Report Type: 
  Country: US (occurrence: US)
  Receive Date: 20110419
  Receipt Date: 20121022
  Transmission Date: 20130627
  Serious: Yes (Other)
  Sender: FDA-Public Use
  Company Number: US-JNJFOC-20110404923

PATIENT
  Sex: Female
  Weight: 108.86 kg

DRUGS (9)
  1. DURAGESIC [Suspect]
     Indication: PRODUCT USED FOR UNKNOWN INDICATION
     Route: 062
  2. DURAGESIC [Suspect]
     Indication: PRODUCT USED FOR UNKNOWN INDICATION
     Route: 062
  3. DURAGESIC [Suspect]
     Indication: PAIN
     Route: 062
  4. MYLAN FENTANYL TRANSDERMAL SYSTEM [Suspect]
     Indication: PRODUCT USED FOR UNKNOWN INDICATION
     Route: 062
     Dates: start: 201102
  5. PREMARIN [Concomitant]
     Route: 048
  6. HYDROXYCHLOROQUINE [Concomitant]
     Route: 048
  7. LEXAPRO [Concomitant]
     Route: 048
  8. LEVETIRACETAM [Concomitant]
     Route: 048
  9. LYRICA [Concomitant]
     Indication: PAIN
     Route: 065

REACTIONS (9)
  - Swelling [Unknown]
  - Oedema peripheral [Unknown]
  - Pharyngeal oedema [Unknown]
  - Product quality issue [Unknown]
  - Speech disorder [Unknown]
  - Drug ineffective [Unknown]
  - Malaise [Unknown]
  - Skin irritation [Not Recovered/Not Resolved]
  - Skin disorder [Not Recovered/Not Resolved]
